FAERS Safety Report 6328263-6 (Version None)
Quarter: 2009Q3

REPORT INFORMATION
  Report Type: 
  Country: None (occurrence: None)
  Receive Date: 20090825
  Receipt Date: 20090203
  Transmission Date: 20100115
  Serious: No
  Sender: FDA-Public Use
  Company Number: US-ABBOTT-09P-163-0501560-00

PATIENT
  Sex: Female
  Weight: 49.032 kg

DRUGS (3)
  1. SYNTHROID [Suspect]
     Indication: THYROIDECTOMY
     Dates: start: 20050101
  2. CYTOMEL [Concomitant]
     Indication: THYROID DISORDER
     Dates: start: 20080101
  3. CALCITRIOL [Concomitant]
     Indication: MINERAL SUPPLEMENTATION
     Dates: start: 20050101

REACTIONS (4)
  - DRUG INEFFECTIVE [None]
  - EYE SWELLING [None]
  - FATIGUE [None]
  - HYPOTHYROIDISM [None]
